FAERS Safety Report 16451615 (Version 2)
Quarter: 2019Q4

REPORT INFORMATION
  Report Type: Spontaneous
  Country: US (occurrence: US)
  Receive Date: 20190619
  Receipt Date: 20191111
  Transmission Date: 20200122
  Serious: No
  Sender: FDA-Public Use
  Company Number: US-ALLERGAN-1905904US

PATIENT
  Age: 20 Year
  Sex: Female

DRUGS (1)
  1. LO LOESTRIN FE [Suspect]
     Active Substance: ETHINYL ESTRADIOL\NORETHINDRONE ACETATE
     Indication: DYSMENORRHOEA
     Dosage: 10 ?G, QD
     Route: 065
     Dates: start: 2014

REACTIONS (4)
  - Amenorrhoea [Not Recovered/Not Resolved]
  - Off label use [Unknown]
  - Metrorrhagia [Unknown]
  - Product dose omission [Unknown]
